FAERS Safety Report 6195092-6 (Version None)
Quarter: 2009Q2

REPORT INFORMATION
  Report Type: 
  Country: None (occurrence: None)
  Receive Date: 20090519
  Receipt Date: 20090507
  Transmission Date: 20091009
  Serious: Yes (Other)
  Sender: FDA-Public Use
  Company Number: SE-PFIZER INC-2009210052

PATIENT

DRUGS (1)
  1. ZOLOFT [Suspect]
     Dosage: 50 MG/24H
     Route: 065
     Dates: start: 20060101

REACTIONS (1)
  - COLITIS ULCERATIVE [None]
